FAERS Safety Report 24731324 (Version 3)
Quarter: 2024Q4

REPORT INFORMATION
  Report Type: Spontaneous
  Country: US (occurrence: US)
  Receive Date: 20241213
  Receipt Date: 20241230
  Transmission Date: 20250115
  Serious: Yes (Other)
  Sender: PFIZER
  Company Number: US-PFIZER INC-202400307985

PATIENT
  Age: 72 Year
  Sex: Male
  Weight: 80.726 kg

DRUGS (5)
  1. TIKOSYN [Suspect]
     Active Substance: DOFETILIDE
     Indication: Atrial fibrillation
     Dosage: TAKE 1 CAPSULE (S) TWICE A DAY
     Route: 048
     Dates: start: 20240129
  2. TIKOSYN [Suspect]
     Active Substance: DOFETILIDE
     Indication: Cardiac ablation
  3. ELIQUIS [Concomitant]
     Active Substance: APIXABAN
     Indication: Atrial fibrillation
     Dosage: UNK
  4. ELIQUIS [Concomitant]
     Active Substance: APIXABAN
     Indication: Cardiac ablation
  5. ELIQUIS [Concomitant]
     Active Substance: APIXABAN
     Indication: Anticoagulant therapy

REACTIONS (21)
  - Hypothyroidism [Unknown]
  - Diabetes mellitus [Unknown]
  - Immunodeficiency [Unknown]
  - Arteriosclerosis coronary artery [Unknown]
  - Cardiomyopathy [Unknown]
  - Implantable defibrillator insertion [Unknown]
  - Type 2 diabetes mellitus [Unknown]
  - Hyperlipidaemia [Unknown]
  - Obesity [Unknown]
  - Hypercoagulation [Unknown]
  - Atrioventricular block first degree [Unknown]
  - Chronic left ventricular failure [Unknown]
  - Inguinal hernia [Unknown]
  - Irritable bowel syndrome [Unknown]
  - Constipation [Unknown]
  - Arthropathy [Unknown]
  - Neck pain [Unknown]
  - Glycosylated haemoglobin increased [Unknown]
  - Nephropathy [Unknown]
  - Hyperglycaemia [Unknown]
  - Panic disorder [Unknown]

NARRATIVE: CASE EVENT DATE: 20240129
